FAERS Safety Report 21178778 (Version 1)
Quarter: 2022Q3

REPORT INFORMATION
  Report Type: Report from Study
  Country: US (occurrence: US)
  Receive Date: 20220805
  Receipt Date: 20220805
  Transmission Date: 20221027
  Serious: Yes (Other)
  Sender: FDA-Public Use
  Company Number: US-JAZZ-2022-US-016362

PATIENT
  Sex: Female

DRUGS (8)
  1. XYREM [Suspect]
     Active Substance: SODIUM OXYBATE
     Indication: Narcolepsy
     Dosage: UNK
     Route: 065
  2. XYWAV [Suspect]
     Active Substance: CALCIUM OXYBATE\MAGNESIUM OXYBATE\POTASSIUM OXYBATE\SODIUM OXYBATE
     Indication: Narcolepsy
     Dosage: UNK
     Route: 065
  3. WELLBUTRIN XL [Concomitant]
     Active Substance: BUPROPION HYDROCHLORIDE
     Indication: Product used for unknown indication
     Dosage: UNK
     Dates: start: 20200205
  4. GABAPENTIN [Concomitant]
     Active Substance: GABAPENTIN
     Indication: Anxiety
     Dosage: UNK
     Dates: start: 20220301
  5. GABAPENTIN [Concomitant]
     Active Substance: GABAPENTIN
     Indication: Pain management
  6. TURMERIC + BLACK PEPPAR [Concomitant]
     Indication: Product used for unknown indication
     Dosage: UNK
     Dates: start: 20220501
  7. CANNABIS SATIVA SUBSP. INDICA TOP [Concomitant]
     Active Substance: CANNABIS SATIVA SUBSP. INDICA TOP
     Indication: Anxiety
     Dosage: UNK
  8. CANNABIS SATIVA SUBSP. INDICA TOP [Concomitant]
     Active Substance: CANNABIS SATIVA SUBSP. INDICA TOP
     Indication: Pain management

REACTIONS (6)
  - Suicidal ideation [Recovered/Resolved]
  - Nerve injury [Unknown]
  - COVID-19 [Unknown]
  - Sleep apnoea syndrome [Unknown]
  - Nightmare [Unknown]
  - Intentional dose omission [Unknown]
